FAERS Safety Report 9947878 (Version 2)
Quarter: 2014Q1

REPORT INFORMATION
  Report Type: Report from Study
  Country: US (occurrence: US)
  Receive Date: 20140303
  Receipt Date: 20140303
  Transmission Date: 20141002
  Serious: No
  Sender: FDA-Public Use
  Company Number: US-ABBVIE-12P-163-0909106-00

PATIENT
  Age: 51 Year
  Sex: Female

DRUGS (29)
  1. HUMIRA [Suspect]
     Indication: CROHN^S DISEASE
     Dosage: LOADING DOSE
     Route: 058
     Dates: start: 20120125, end: 20120125
  2. HUMIRA [Suspect]
     Dosage: LOADING DOSE
     Route: 058
     Dates: start: 20120211, end: 20120211
  3. HUMIRA [Suspect]
     Route: 058
     Dates: start: 20120225
  4. HUMIRA [Suspect]
     Dates: start: 201204
  5. CRESTOR [Concomitant]
     Indication: BLOOD CHOLESTEROL INCREASED
  6. BIDIL [Concomitant]
     Indication: CARDIAC DISORDER
     Dosage: TID
  7. VALIUM [Concomitant]
     Indication: ANXIETY
     Dosage: UP TO 4 DAILY
  8. ZANAFLEX [Concomitant]
     Indication: MUSCLE SPASMS
     Dosage: UP TO 4 DAILY
  9. COREG [Concomitant]
     Indication: CARDIAC DISORDER
     Dosage: BID
  10. MS CONTIN [Concomitant]
     Indication: PAIN MANAGEMENT
     Dosage: UP TO 3 DAILY
  11. DILAUDID [Concomitant]
     Indication: PAIN
     Dosage: 2 TABS UP TO 4X DAILY
  12. DIGOXIN [Concomitant]
     Indication: CARDIAC DISORDER
  13. ZOLOFT [Concomitant]
     Indication: DEPRESSION
  14. LASIX [Concomitant]
     Indication: CARDIAC FAILURE CONGESTIVE
     Dosage: 1 DAILY UNLESS SHE GAINS FORE THAN 2 LBS
  15. ALDACTONE [Concomitant]
     Indication: CARDIAC FAILURE CONGESTIVE
  16. ESTRATEST [Concomitant]
     Indication: HYSTERECTOMY
     Dosage: ALTERNATES THAT WITH ESTRACE
  17. ESTRACE [Concomitant]
     Indication: HYSTERECTOMY
     Dosage: ALTERNATES
  18. PROTONIX [Concomitant]
     Indication: PROPHYLAXIS
  19. AMBIEN [Concomitant]
     Indication: INSOMNIA
     Dosage: AT HS
  20. ATARAX [Concomitant]
     Indication: ECZEMA
  21. ZOFRAN [Concomitant]
     Indication: NAUSEA
  22. PHENERGAN [Concomitant]
     Indication: NAUSEA
  23. TRANSDERM-SCOP [Concomitant]
     Indication: VERTIGO
     Dosage: TRANSDERMAL PATCH BEHIND EAR PRN
  24. VITAMIN D3 [Concomitant]
     Indication: PRODUCT USED FOR UNKNOWN INDICATION
     Dosage: DAILY
  25. ASA [Concomitant]
     Indication: CARDIAC DISORDER
  26. VITAMIN B12 [Concomitant]
     Indication: PRODUCT USED FOR UNKNOWN INDICATION
  27. NIACIN [Concomitant]
     Indication: PRODUCT USED FOR UNKNOWN INDICATION
     Dosage: 2 DAILY
     Dates: end: 201203
  28. MAG OXIDE [Concomitant]
     Indication: PRODUCT USED FOR UNKNOWN INDICATION
     Dosage: 2 DAILY
  29. VITAMIN C [Concomitant]
     Indication: PRODUCT USED FOR UNKNOWN INDICATION
     Dosage: DAILY

REACTIONS (12)
  - Frequent bowel movements [Not Recovered/Not Resolved]
  - Abdominal distension [Not Recovered/Not Resolved]
  - Crohn^s disease [Not Recovered/Not Resolved]
  - Diarrhoea [Not Recovered/Not Resolved]
  - Abdominal pain [Not Recovered/Not Resolved]
  - Nausea [Not Recovered/Not Resolved]
  - Nausea [Not Recovered/Not Resolved]
  - Muscle spasms [Not Recovered/Not Resolved]
  - Frequent bowel movements [Not Recovered/Not Resolved]
  - Hyperphagia [Unknown]
  - Blood cholesterol increased [Unknown]
  - Mucous stools [Recovered/Resolved]
